FAERS Safety Report 8000795-4 (Version None)
Quarter: 2011Q4

REPORT INFORMATION
  Report Type: 
  Country: None (occurrence: None)
  Receive Date: 20111214
  Receipt Date: 20111128
  Transmission Date: 20120403
  Serious: Yes (Hospitalization)
  Sender: FDA-Public Use
  Company Number: TCI2011A03541

PATIENT
  Age: 69 Year
  Sex: Male

DRUGS (4)
  1. ACTOS [Suspect]
     Indication: DIABETES MELLITUS
     Dosage: 30 MG (30 MG,1 IN 1 D) PER ORAL
     Route: 048
     Dates: start: 20020101, end: 20110601
  2. AMARYL [Concomitant]
  3. BASEN OD (VOGLIBOSE) [Concomitant]
  4. ASPIRIN [Concomitant]

REACTIONS (3)
  - BLADDER TRANSITIONAL CELL CARCINOMA [None]
  - CYSTITIS [None]
  - DEMENTIA [None]
